FAERS Safety Report 9931852 (Version 1)
Quarter: 2014Q1

REPORT INFORMATION
  Report Type: Spontaneous
  Country: US (occurrence: None)
  Receive Date: 20140226
  Receipt Date: 20140226
  Transmission Date: 20141002
  Serious: No
  Sender: FDA-Public Use
  Company Number: SYM-2013-02819

PATIENT
  Sex: Male

DRUGS (4)
  1. CARDIZEM CD [Suspect]
     Indication: HYPERTENSION
     Route: 048
  2. DILTIAZEM [Suspect]
     Indication: HYPERTENSION
     Route: 048
  3. CRESTOR [Concomitant]
  4. TAMSULOSIN [Concomitant]

REACTIONS (3)
  - Blood pressure increased [None]
  - Product substitution issue [None]
  - Drug ineffective [None]
